FAERS Safety Report 6536646-4 (Version None)
Quarter: 2010Q1

REPORT INFORMATION
  Report Type: 
  Country: None (occurrence: None)
  Receive Date: 20100113
  Receipt Date: 20100108
  Transmission Date: 20100710
  Serious: Yes (Life-Threatening, Hospitalization)
  Sender: FDA-Public Use
  Company Number: GB-ABBOTT-08P-167-0461961-00

PATIENT
  Sex: Male
  Weight: 86 kg

DRUGS (3)
  1. HUMIRA [Suspect]
     Indication: ANKYLOSING SPONDYLITIS
     Route: 058
     Dates: start: 20061027
  2. HUMIRA [Suspect]
  3. ARCOXIA [Concomitant]
     Indication: PAIN
     Route: 048

REACTIONS (3)
  - ACUTE MYELOID LEUKAEMIA [None]
  - PROTEINURIA [None]
  - VIRAL INFECTION [None]
